FAERS Safety Report 22068933 (Version 1)
Quarter: 2023Q1

REPORT INFORMATION
  Report Type: Spontaneous
  Country: US (occurrence: None)
  Receive Date: 20230306
  Receipt Date: 20230306
  Transmission Date: 20230417
  Serious: Yes (Hospitalization, Other)
  Sender: FDA-Public Use
  Company Number: None

PATIENT
  Age: 56 Year
  Sex: Male
  Weight: 68.4 kg

DRUGS (5)
  1. OLANZAPINE [Suspect]
     Active Substance: OLANZAPINE
     Indication: Hallucination
     Dosage: OTHER QUANTITY : 0.75 TABLET(S);?FREQUENCY : AT BEDTIME;?
     Route: 048
  2. Nature^s Plus Adult^s Chewable multivitamin [Concomitant]
  3. FISH OIL [Concomitant]
     Active Substance: FISH OIL
  4. AGALSIDASE BETA [Concomitant]
     Active Substance: AGALSIDASE BETA
  5. MAGNESIUM CITRATE [Concomitant]
     Active Substance: MAGNESIUM CITRATE

REACTIONS (3)
  - Insomnia [None]
  - Hallucination [None]
  - Withdrawal syndrome [None]

NARRATIVE: CASE EVENT DATE: 20181105
